FAERS Safety Report 6035259-0 (Version None)
Quarter: 2009Q1

REPORT INFORMATION
  Report Type: 
  Country: None (occurrence: None)
  Receive Date: 20090109
  Receipt Date: 20081230
  Transmission Date: 20090719
  Serious: Yes (Other)
  Sender: FDA-Public Use
  Company Number: 233383K08USA

PATIENT
  Age: 58 Year
  Sex: Female

DRUGS (4)
  1. REBIF [Suspect]
     Indication: MULTIPLE SCLEROSIS
     Dosage: 44 MCG, SUBCUTANEOUS
     Route: 058
     Dates: start: 20031215
  2. AMANTADINE HCL [Concomitant]
  3. NEURONTIN [Concomitant]
  4. UNSPECIFIED PREMEDICATION [Concomitant]

REACTIONS (1)
  - BREAST CANCER FEMALE [None]
